FAERS Safety Report 19360215 (Version 2)
Quarter: 2021Q3

REPORT INFORMATION
  Report Type: Spontaneous
  Country: MY (occurrence: MY)
  Receive Date: 20210601
  Receipt Date: 20210715
  Transmission Date: 20211014
  Serious: Yes (Other)
  Sender: FDA-Public Use
  Company Number: MY-ACCORD-226138

PATIENT
  Age: 23 Year
  Sex: Female

DRUGS (5)
  1. DESVENLAFAXIN/DESVENLAFAXINSUCCINATE [Concomitant]
     Active Substance: DESVENLAFAXINE SUCCINATE
     Indication: MAJOR DEPRESSION
  2. LORAZEPAM. [Concomitant]
     Active Substance: LORAZEPAM
     Indication: MAJOR DEPRESSION
  3. DESVENLAFAXIN/DESVENLAFAXINSUCCINATE [Concomitant]
     Active Substance: DESVENLAFAXINE SUCCINATE
     Indication: MAJOR DEPRESSION
  4. QUETIAPINE. [Suspect]
     Active Substance: QUETIAPINE
     Indication: POOR QUALITY SLEEP
  5. LITHIUM. [Concomitant]
     Active Substance: LITHIUM
     Indication: SCHIZOAFFECTIVE DISORDER DEPRESSIVE TYPE
     Dosage: ON

REACTIONS (2)
  - Sleep-related eating disorder [Recovered/Resolved]
  - Weight increased [Unknown]
